FAERS Safety Report 22145481 (Version 4)
Quarter: 2023Q2

REPORT INFORMATION
  Report Type: Report from Study
  Country: US (occurrence: US)
  Receive Date: 20230328
  Receipt Date: 20230601
  Transmission Date: 20230721
  Serious: Yes (Other)
  Sender: FDA-Public Use
  Company Number: US-HORIZON THERAPEUTICS-HZN-2022-009612

PATIENT

DRUGS (1)
  1. TEPEZZA [Suspect]
     Active Substance: TEPROTUMUMAB-TRBW
     Indication: Endocrine ophthalmopathy
     Dosage: FIRST INFUSION
     Route: 042
     Dates: start: 20221208

REACTIONS (11)
  - Diabetes mellitus [Unknown]
  - Pain in extremity [Unknown]
  - Asthenopia [Unknown]
  - Visual impairment [Unknown]
  - Diarrhoea [Unknown]
  - Muscle spasms [Unknown]
  - Headache [Unknown]
  - Alopecia [Not Recovered/Not Resolved]
  - Nausea [Unknown]
  - Pruritus [Unknown]
  - Breast disorder [Unknown]

NARRATIVE: CASE EVENT DATE: 20221201
